FAERS Safety Report 11839452 (Version 1)
Quarter: 2015Q4

REPORT INFORMATION
  Report Type: Spontaneous
  Country: US (occurrence: None)
  Receive Date: 20151215
  Receipt Date: 20151215
  Transmission Date: 20160305
  Serious: No
  Sender: FDA-Public Use
  Company Number: None

PATIENT
  Age: 40 Year
  Sex: Female

DRUGS (6)
  1. ALLEGRA [Concomitant]
     Active Substance: FEXOFENADINE HYDROCHLORIDE
  2. PREDNISONE. [Concomitant]
     Active Substance: PREDNISONE
  3. METHIMAZOLE. [Suspect]
     Active Substance: METHIMAZOLE
     Indication: BASEDOW^S DISEASE
     Dates: start: 20140307, end: 20140922
  4. LEVAQUIN [Concomitant]
     Active Substance: LEVOFLOXACIN
  5. IMURAN [Concomitant]
     Active Substance: AZATHIOPRINE
  6. LEVOFLOXACIN. [Suspect]
     Active Substance: LEVOFLOXACIN
     Indication: UPPER RESPIRATORY TRACT INFECTION
     Dates: start: 20140809, end: 20140816

REACTIONS (10)
  - Autoimmune hepatitis [None]
  - Rhinitis allergic [None]
  - Smooth muscle antibody positive [None]
  - Upper respiratory tract infection [None]
  - Aspartate aminotransferase increased [None]
  - Blood bilirubin increased [None]
  - Drug-induced liver injury [None]
  - Alanine aminotransferase increased [None]
  - Antinuclear antibody positive [None]
  - Infection [None]

NARRATIVE: CASE EVENT DATE: 20140915
